FAERS Safety Report 18210976 (Version 2)
Quarter: 2020Q4

REPORT INFORMATION
  Report Type: Other
  Country: US (occurrence: US)
  Receive Date: 20200830
  Receipt Date: 20201024
  Transmission Date: 20210113
  Serious: Yes (Other)
  Sender: FDA-Public Use
  Company Number: US-ROCHE-2667726

PATIENT
  Age: 46 Year
  Sex: Female
  Weight: 83.99 kg

DRUGS (28)
  1. PROMETHAZINE [Concomitant]
     Active Substance: PROMETHAZINE HYDROCHLORIDE
     Indication: NAUSEA
     Route: 048
  2. METOPROLOL. [Concomitant]
     Active Substance: METOPROLOL
     Route: 048
  3. PRAVASTATIN. [Concomitant]
     Active Substance: PRAVASTATIN
     Indication: BLOOD CHOLESTEROL INCREASED
     Route: 048
  4. GABAPENTIN. [Concomitant]
     Active Substance: GABAPENTIN
     Route: 048
  5. METFORMIN [Concomitant]
     Active Substance: METFORMIN HYDROCHLORIDE
     Indication: POLYCYSTIC OVARIES
  6. ESCITALOPRAM [Concomitant]
     Active Substance: ESCITALOPRAM OXALATE
     Indication: DEPRESSION
     Route: 048
  7. VYVANSE [Concomitant]
     Active Substance: LISDEXAMFETAMINE DIMESYLATE
     Indication: ATTENTION DEFICIT HYPERACTIVITY DISORDER
     Route: 048
     Dates: start: 2009
  8. BACLOFEN. [Concomitant]
     Active Substance: BACLOFEN
     Dosage: TAKE 2 TABLETS 3 TIMES A DAY
     Route: 048
  9. VITAMIN B12 [Concomitant]
     Active Substance: CYANOCOBALAMIN
     Dosage: 1000 MCG/ML EVERY MONTH
     Route: 030
  10. FLUTICASONE PROPIONATE. [Concomitant]
     Active Substance: FLUTICASONE PROPIONATE
     Dosage: 50 MCG/ACTUATION NASAL SPRAY SUSPENSION
  11. BUPRENORPHINE. [Concomitant]
     Active Substance: BUPRENORPHINE
     Indication: PAIN
     Route: 061
  12. HYDROCODONE/ACETAMINOPHEN [Concomitant]
     Active Substance: ACETAMINOPHEN\HYDROCODONE
     Dosage: 10 MG-325 MG
     Route: 048
  13. LINZESS [Concomitant]
     Active Substance: LINACLOTIDE
     Dosage: 72 MCG
  14. OCREVUS [Suspect]
     Active Substance: OCRELIZUMAB
     Indication: RELAPSING-REMITTING MULTIPLE SCLEROSIS
     Route: 042
     Dates: start: 20190806, end: 20200224
  15. METFORMIN [Concomitant]
     Active Substance: METFORMIN HYDROCHLORIDE
     Indication: DIABETES MELLITUS
     Route: 048
  16. MIRTAZAPINE. [Concomitant]
     Active Substance: MIRTAZAPINE
     Indication: ANXIETY
  17. FENOFIBRATE. [Concomitant]
     Active Substance: FENOFIBRATE
     Indication: DIABETES MELLITUS
     Route: 048
  18. PREGABALIN. [Concomitant]
     Active Substance: PREGABALIN
     Indication: RESTLESS LEGS SYNDROME
  19. ESOMEPRAZOLE MAGNESIUM. [Concomitant]
     Active Substance: ESOMEPRAZOLE MAGNESIUM
     Indication: GASTROOESOPHAGEAL REFLUX DISEASE
     Route: 048
  20. PREGABALIN. [Concomitant]
     Active Substance: PREGABALIN
     Indication: NEURALGIA
     Route: 048
  21. XTAMPZA ER [Concomitant]
     Active Substance: OXYCODONE
     Route: 048
  22. VASCEPA [Concomitant]
     Active Substance: ICOSAPENT ETHYL
     Route: 048
  23. JARDIANCE [Concomitant]
     Active Substance: EMPAGLIFLOZIN
     Indication: DIABETES MELLITUS
     Route: 048
  24. HUMULIN R [Concomitant]
     Active Substance: INSULIN HUMAN
     Indication: DIABETES MELLITUS
     Dosage: 90 UNITS IN AM 90 UNITS AT NOON 120 UNITS AT NIGHT
     Route: 058
  25. LISINOPRIL. [Concomitant]
     Active Substance: LISINOPRIL
     Indication: HYPERTENSION
     Route: 048
  26. TIZANIDINE. [Concomitant]
     Active Substance: TIZANIDINE
     Indication: RESTLESS LEGS SYNDROME
     Dosage: AT NIGHT
     Route: 048
  27. DICYCLOMINE [Concomitant]
     Active Substance: DICYCLOMINE HYDROCHLORIDE
  28. MONTELUKAST [Concomitant]
     Active Substance: MONTELUKAST SODIUM

REACTIONS (3)
  - Osteomyelitis [Not Recovered/Not Resolved]
  - Pain [Not Recovered/Not Resolved]
  - Hypoaesthesia [Not Recovered/Not Resolved]

NARRATIVE: CASE EVENT DATE: 20200824
